FAERS Safety Report 8795679 (Version 2)
Quarter: 2013Q1

REPORT INFORMATION
  Report Type: Report from Study
  Country: JP (occurrence: JP)
  Receive Date: 20120920
  Receipt Date: 20130308
  Transmission Date: 20140127
  Serious: Yes (Death)
  Sender: FDA-Public Use
  Company Number: JP-GENZYME-THYM-1001321

PATIENT
  Age: 80 Year
  Sex: Female
  Weight: 35 kg

DRUGS (6)
  1. THYMOGLOBULINE [Suspect]
     Indication: APLASTIC ANAEMIA
     Dosage: 125 MG/KG, QD
     Route: 042
     Dates: start: 20091019, end: 20091023
  2. CICLOSPORIN [Concomitant]
     Indication: APLASTIC ANAEMIA
     Dosage: 100 MG, QD
     Route: 048
     Dates: start: 20091009, end: 20091115
  3. METHYLPREDNISOLONE SODIUM SUCCINATE [Concomitant]
     Indication: PREMEDICATION
     Dosage: 250 MG, QD
     Route: 042
     Dates: start: 20091019, end: 20091020
  4. METHYLPREDNISOLONE SODIUM SUCCINATE [Concomitant]
     Indication: COLONY STIMULATING FACTOR THERAPY
     Dosage: 125 MG, QD
     Route: 042
     Dates: start: 20091021, end: 20091023
  5. METHYLPREDNISOLONE SODIUM SUCCINATE [Concomitant]
     Indication: APLASTIC ANAEMIA
     Dosage: UNK
     Route: 065
     Dates: end: 20091110
  6. METHYLPREDNISOLONE SODIUM SUCCINATE [Concomitant]
     Dosage: UNK
     Route: 065
     Dates: start: 20091109, end: 20091114

REACTIONS (2)
  - Hepatic failure [Fatal]
  - Cytomegalovirus infection [Fatal]
